FAERS Safety Report 8069173-6 (Version None)
Quarter: 2012Q1

REPORT INFORMATION
  Report Type: 
  Country: None (occurrence: None)
  Receive Date: 20120125
  Receipt Date: 20120119
  Transmission Date: 20120608
  Serious: Yes (Other)
  Sender: FDA-Public Use
  Company Number: US-PFIZER INC-2012016144

PATIENT
  Sex: Female
  Weight: 85.714 kg

DRUGS (4)
  1. EFFEXOR XR [Suspect]
     Indication: DEPRESSION
     Dosage: 37.5 MG, 1X/DAY
     Route: 048
     Dates: start: 20050101, end: 20100101
  2. EFFEXOR XR [Suspect]
     Indication: ANXIETY
  3. FISH OIL [Concomitant]
     Dosage: UNK
  4. TOPROL-XL [Concomitant]
     Indication: HYPERTENSION
     Dosage: UNK

REACTIONS (1)
  - HYPERTENSION [None]
